FAERS Safety Report 7319964-1 (Version None)
Quarter: 2011Q1

REPORT INFORMATION
  Report Type: 
  Country: None (occurrence: None)
  Receive Date: 20110228
  Receipt Date: 20110223
  Transmission Date: 20110831
  Serious: Yes (Hospitalization)
  Sender: FDA-Public Use
  Company Number: CHPA2011IT03195

PATIENT
  Sex: Female

DRUGS (1)
  1. VOLTAREN [Suspect]
     Indication: BONE PAIN
     Dosage: 3 POSOLOGICAL UNITS
     Route: 061
     Dates: start: 20101229, end: 20110101

REACTIONS (3)
  - LIP OEDEMA [None]
  - ERYTHEMA [None]
  - PRURITUS [None]
